FAERS Safety Report 9860866 (Version 2)
Quarter: 2014Q2

REPORT INFORMATION
  Report Type: Spontaneous
  Country: US (occurrence: US)
  Receive Date: 20140202
  Receipt Date: 20140430
  Transmission Date: 20141212
  Serious: No
  Sender: FDA-Public Use
  Company Number: US-009507513-1401USA013113

PATIENT
  Age: 75 Year
  Sex: Male

DRUGS (2)
  1. NASONEX [Suspect]
     Dosage: TWO SPRAY IN EACH NOSTRIL, QM
     Route: 045
     Dates: start: 201307
  2. NASONEX [Suspect]
     Dosage: ONE SPRAY IN EACH NOSTRIL, QM
     Route: 045
     Dates: start: 2013

REACTIONS (4)
  - Nasopharyngitis [Unknown]
  - Underdose [Unknown]
  - Product packaging quantity issue [Unknown]
  - Product quality issue [Unknown]
